FAERS Safety Report 7684273-8 (Version None)
Quarter: 2011Q3

REPORT INFORMATION
  Report Type: 
  Country: None (occurrence: None)
  Receive Date: 20110815
  Receipt Date: 20110802
  Transmission Date: 20111222
  Serious: Yes (Hospitalization)
  Sender: FDA-Public Use
  Company Number: US-CELGENEUS-163-21880-11080362

PATIENT
  Sex: Male
  Weight: 79.45 kg

DRUGS (1)
  1. REVLIMID [Suspect]
     Indication: MYELODYSPLASTIC SYNDROME
     Dosage: 10 MILLIGRAM
     Route: 048
     Dates: start: 20110701, end: 20110701

REACTIONS (3)
  - DECREASED APPETITE [None]
  - BLOOD COUNT ABNORMAL [None]
  - ABASIA [None]
